FAERS Safety Report 8986987 (Version 2)
Quarter: 2013Q1

REPORT INFORMATION
  Report Type: Spontaneous
  Country: FR (occurrence: FR)
  Receive Date: 20121227
  Receipt Date: 20130130
  Transmission Date: 20140127
  Serious: Yes (Hospitalization, Other)
  Sender: FDA-Public Use
  Company Number: FR-BRISTOL-MYERS SQUIBB COMPANY-17226309

PATIENT
  Age: 57 Year
  Sex: Male

DRUGS (4)
  1. ABILIFY TABS 10 MG [Suspect]
     Indication: BIPOLAR DISORDER
     Route: 048
     Dates: start: 20121016, end: 20121026
  2. ATACAND [Interacting]
     Indication: HYPERTENSION
     Dosage: SCORED TABS
     Route: 048
     Dates: end: 20121027
  3. SEROPLEX [Suspect]
     Indication: BIPOLAR DISORDER
     Dosage: FILM COATED TABS
     Route: 048
     Dates: start: 20120909, end: 20121026
  4. DEPAKOTE [Suspect]
     Indication: BIPOLAR DISORDER
     Dosage: 250MG GASTRO RESISTANT TABS?6SEP12,INCRE TO 1GM DAILY, DECRE TO 500MG ON 04OCT12,250MG ON 16OCT12
     Dates: start: 20120816, end: 20121026

REACTIONS (2)
  - Hyponatraemia [Recovered/Resolved]
  - Drug interaction [Unknown]
